FAERS Safety Report 5078092-9 (Version None)
Quarter: 2006Q3

REPORT INFORMATION
  Report Type: 
  Country: None (occurrence: None)
  Receive Date: 20060808
  Receipt Date: 20060808
  Transmission Date: 20061208
  Serious: Yes (Hospitalization)
  Sender: FDA-Public Use
  Company Number: None

PATIENT
  Age: 71 Year
  Sex: Male
  Weight: 54.9 kg

DRUGS (1)
  1. HYDROCHLOROTHIAZIDE [Suspect]
     Indication: HYPERTENSION
     Dosage: 12.5MG  QD  PO   PTA
     Route: 048

REACTIONS (9)
  - CORONARY ARTERY DISEASE [None]
  - ELECTROCARDIOGRAM CHANGE [None]
  - FALL [None]
  - HEAD INJURY [None]
  - HYPONATRAEMIA [None]
  - INADEQUATE DIET [None]
  - INAPPROPRIATE ANTIDIURETIC HORMONE SECRETION [None]
  - NEOPLASM MALIGNANT [None]
  - WEIGHT DECREASED [None]
